FAERS Safety Report 23333926 (Version 2)
Quarter: 2023Q4

REPORT INFORMATION
  Report Type: Spontaneous
  Country: UA (occurrence: UA)
  Receive Date: 20231223
  Receipt Date: 20231229
  Transmission Date: 20240110
  Serious: Yes (Hospitalization, Other)
  Sender: FDA-Public Use
  Company Number: UA-ABBVIE-5547545

PATIENT
  Age: 9 Year
  Sex: Male

DRUGS (4)
  1. HUMIRA [Suspect]
     Active Substance: ADALIMUMAB
     Indication: Juvenile idiopathic arthritis
     Route: 058
     Dates: start: 201705, end: 201710
  2. HUMIRA [Suspect]
     Active Substance: ADALIMUMAB
     Route: 058
     Dates: start: 20140313, end: 201612
  3. HUMIRA [Suspect]
     Active Substance: ADALIMUMAB
     Route: 058
     Dates: start: 201811, end: 202109
  4. METHOTREXATE [Concomitant]
     Active Substance: METHOTREXATE
     Indication: Juvenile idiopathic arthritis
     Dates: start: 201811

REACTIONS (21)
  - Lymphadenitis bacterial [Recovered/Resolved]
  - Respiratory tract infection [Unknown]
  - Asthenia [Unknown]
  - Furuncle [Recovered/Resolved]
  - Pyrexia [Unknown]
  - Liver abscess [Unknown]
  - Arthritis [Unknown]
  - Arthritis [Unknown]
  - Aphthous ulcer [Unknown]
  - Weight decreased [Unknown]
  - Colitis [Unknown]
  - Juvenile idiopathic arthritis [Unknown]
  - Red blood cell sedimentation rate increased [Unknown]
  - Cholangiocarcinoma [Unknown]
  - Hepatectomy [Unknown]
  - Cholecystectomy [Unknown]
  - Lymphadenitis bacterial [Unknown]
  - Crohn^s disease [Unknown]
  - Arthritis [Unknown]
  - Inflammation [Unknown]
  - Purulence [Unknown]

NARRATIVE: CASE EVENT DATE: 20161201
